FAERS Safety Report 13192663 (Version 1)
Quarter: 2017Q1

REPORT INFORMATION
  Report Type: Spontaneous
  Country: ES (occurrence: ES)
  Receive Date: 20170207
  Receipt Date: 20170207
  Transmission Date: 20170428
  Serious: Yes (Other)
  Sender: FDA-Public Use
  Company Number: ES-ABBVIE-17P-144-1858593-00

PATIENT
  Age: 42 Year
  Sex: Female
  Weight: 83 kg

DRUGS (2)
  1. EXVIERA [Suspect]
     Active Substance: DASABUVIR
     Indication: CHRONIC HEPATITIS C
     Route: 048
     Dates: start: 20161013, end: 20161214
  2. VIEKIRAX [Suspect]
     Active Substance: OMBITASVIR\PARITAPREVIR\RITONAVIR
     Indication: CHRONIC HEPATITIS C
     Route: 048
     Dates: start: 20161013, end: 20161214

REACTIONS (2)
  - Visual acuity reduced [Recovered/Resolved with Sequelae]
  - Papilloedema [Recovered/Resolved with Sequelae]

NARRATIVE: CASE EVENT DATE: 20161214
